FAERS Safety Report 24780410 (Version 1)
Quarter: 2024Q4

REPORT INFORMATION
  Report Type: Spontaneous
  Country: IT (occurrence: IT)
  Receive Date: 20241227
  Receipt Date: 20241227
  Transmission Date: 20250114
  Serious: Yes (Hospitalization, Other)
  Sender: AUROBINDO
  Company Number: IT-MINISAL02-1015848

PATIENT
  Age: 94 Year
  Sex: Female

DRUGS (5)
  1. RAMIPRIL [Suspect]
     Active Substance: RAMIPRIL
     Indication: Hypertension
     Dosage: 5 MILLIGRAM, ONCE A DAY ( 5 MG 1 TABLET AT 8 AM)
     Route: 048
  2. ASPIRIN DL-LYSINE [Suspect]
     Active Substance: ASPIRIN DL-LYSINE
     Indication: Arterial thrombosis
     Dosage: 75 MILLIGRAM, ONCE A DAY (75 MG 1 TABLET AT 12PM)
     Route: 048
  3. LASIX [Suspect]
     Active Substance: FUROSEMIDE
     Indication: Hypertension
     Dosage: 25 MILLIGRAM, ONCE A DAY (25 MG 1 TABLET AT 8 AM)
     Route: 048
  4. OMEPRAZOLE SODIUM [Concomitant]
     Active Substance: OMEPRAZOLE SODIUM
     Indication: Duodenal ulcer
     Dosage: 20 MILLIGRAM (20 MG 1 TABLET 7 HOURS)
     Route: 048
  5. ZOLPIDEM TARTRATE [Concomitant]
     Active Substance: ZOLPIDEM TARTRATE
     Indication: Insomnia
     Dosage: 10 MILLIGRAM, ONCE A DAY (10 MG 1 TABLET 8PM)
     Route: 048

REACTIONS (3)
  - Hypertensive crisis [Recovering/Resolving]
  - Hypokalaemia [Recovering/Resolving]
  - Epistaxis [Recovering/Resolving]

NARRATIVE: CASE EVENT DATE: 20241125
